FAERS Safety Report 9419557 (Version 1)
Quarter: 2013Q3

REPORT INFORMATION
  Report Type: Spontaneous
  Country: US (occurrence: None)
  Receive Date: 20130723
  Receipt Date: 20130723
  Transmission Date: 20140515
  Serious: Yes (Other)
  Sender: FDA-Public Use
  Company Number: 001565521A

PATIENT
  Age: 28 Year
  Sex: Female

DRUGS (4)
  1. PROACTIV SOLUTION RENEWING CLEANSER [Suspect]
     Indication: ACNE
     Dosage: ONCE DAILY DERMAL
     Dates: start: 20130610, end: 20130613
  2. PROACTIV SOLUTION REPAIRING TREATMENT [Suspect]
     Indication: ACNE
     Dosage: ONCE DAILY DERMAL
     Dates: start: 20130610, end: 20130613
  3. PROACTIV SOLUTION OIL FREE MOISTURE SPF 15 [Suspect]
     Indication: ACNE
     Dosage: ONCE DAILY DERMAL
     Dates: start: 20130610, end: 20130613
  4. PROACTIV SOLUTION ADVANCED DAILY OIL CONTROL [Concomitant]
     Indication: ACNE
     Dosage: ONCE DAILY DERMAL
     Dates: start: 20130610, end: 20130613

REACTIONS (4)
  - Hypersensitivity [None]
  - Erythema [None]
  - Rash [None]
  - Swelling [None]
